FAERS Safety Report 6051696-2 (Version None)
Quarter: 2009Q1

REPORT INFORMATION
  Report Type: 
  Country: None (occurrence: None)
  Receive Date: 20090126
  Receipt Date: 20090119
  Transmission Date: 20090719
  Serious: Yes (Death, Hospitalization)
  Sender: FDA-Public Use
  Company Number: FR-BRISTOL-MYERS SQUIBB COMPANY-14476238

PATIENT
  Age: 88 Year
  Sex: Male

DRUGS (12)
  1. ABILIFY [Suspect]
     Dates: start: 20080603, end: 20080707
  2. AUGMENTIN '125' [Suspect]
     Dates: start: 20080529, end: 20080621
  3. PYOSTACINE [Suspect]
     Dates: start: 20080621, end: 20080707
  4. OFLOXACIN [Suspect]
     Dates: start: 20080621, end: 20080707
  5. LYRICA [Suspect]
     Dates: start: 20080602, end: 20080709
  6. LASILIX [Concomitant]
  7. COVERSYL [Concomitant]
  8. PRAXILENE [Concomitant]
  9. EXELON [Concomitant]
  10. IXEL [Concomitant]
  11. LANTUS [Concomitant]
  12. COUMADIN [Concomitant]

REACTIONS (6)
  - FACE OEDEMA [None]
  - HYPERTHERMIA [None]
  - PRURITUS [None]
  - RASH [None]
  - RENAL FAILURE ACUTE [None]
  - THROMBOCYTOPENIA [None]
